FAERS Safety Report 7059146-4 (Version None)
Quarter: 2010Q4

REPORT INFORMATION
  Report Type: 
  Country: None (occurrence: None)
  Receive Date: 20101025
  Receipt Date: 20101012
  Transmission Date: 20110411
  Serious: No
  Sender: FDA-Public Use
  Company Number: US-BIOGENIDEC-2010BI036063

PATIENT
  Age: 46 Year
  Sex: Female

DRUGS (3)
  1. TYSABRI [Suspect]
     Indication: MULTIPLE SCLEROSIS
     Route: 042
     Dates: start: 20100810
  2. ACETAMINOPHEN [Concomitant]
     Indication: PRURITUS GENERALISED
  3. BENADRYL [Concomitant]
     Indication: PRURITUS GENERALISED

REACTIONS (7)
  - ABDOMINAL RIGIDITY [None]
  - CHEST DISCOMFORT [None]
  - DYSPNOEA [None]
  - FLUSHING [None]
  - INFUSION SITE ERYTHEMA [None]
  - MUSCLE SPASMS [None]
  - PRURITUS GENERALISED [None]
